FAERS Safety Report 23871448 (Version 4)
Quarter: 2024Q3

REPORT INFORMATION
  Report Type: Spontaneous
  Country: PL (occurrence: PL)
  Receive Date: 20240519
  Receipt Date: 20240726
  Transmission Date: 20241016
  Serious: Yes (Hospitalization, Other)
  Sender: AUROBINDO
  Company Number: PL-UCBSA-2024020031

PATIENT
  Age: 21 Year
  Sex: Female

DRUGS (12)
  1. LAMOTRIGINE [Suspect]
     Active Substance: LAMOTRIGINE
     Indication: Generalised tonic-clonic seizure
     Dosage: UNK
     Route: 065
  2. LEVETIRACETAM [Suspect]
     Active Substance: LEVETIRACETAM
     Indication: Epilepsy
     Dosage: UNK
     Route: 065
  3. LEVETIRACETAM [Suspect]
     Active Substance: LEVETIRACETAM
     Indication: Generalised tonic-clonic seizure
  4. CYCLOSPORINE [Concomitant]
     Active Substance: CYCLOSPORINE
     Indication: Drug reaction with eosinophilia and systemic symptoms
     Dosage: 4 MILLIGRAM/KILOGRAM, ONCE A DAY
     Route: 065
  5. METHYLPREDNISOLONE [Concomitant]
     Active Substance: METHYLPREDNISOLONE
     Indication: Drug reaction with eosinophilia and systemic symptoms
     Dosage: 250 MILLIGRAM 4 CONSECUTIVE DAYS
     Route: 042
  6. METHYLPREDNISOLONE [Concomitant]
     Active Substance: METHYLPREDNISOLONE
     Dosage: 32 MILLIGRAM
     Route: 042
  7. METHYLPREDNISOLONE [Concomitant]
     Active Substance: METHYLPREDNISOLONE
     Dosage: 1 MILLIGRAM/KILOGRAM, ONCE A DAY
     Route: 042
  8. RUPATADINE [Concomitant]
     Active Substance: RUPATADINE
     Indication: Drug reaction with eosinophilia and systemic symptoms
     Dosage: 32 MILLIGRAM
     Route: 065
  9. RUPATADINE [Concomitant]
     Active Substance: RUPATADINE
     Dosage: 20 MILLIGRAM, ONCE A DAY
     Route: 065
  10. RUPATADINE [Concomitant]
     Active Substance: RUPATADINE
     Dosage: 10 MILLIGRAM, TWO TIMES A DAY
     Route: 065
  11. VALPROATE [Concomitant]
     Active Substance: VALPROIC ACID
     Indication: Generalised tonic-clonic seizure
     Dosage: UNK
     Route: 065
  12. VALPROATE [Concomitant]
     Active Substance: VALPROIC ACID
     Indication: Epilepsy

REACTIONS (5)
  - Alanine aminotransferase increased [Recovered/Resolved]
  - Drug reaction with eosinophilia and systemic symptoms [Recovered/Resolved]
  - Liver injury [Recovered/Resolved]
  - Skin reaction [Recovered/Resolved]
  - White blood cell count increased [Recovered/Resolved]
